FAERS Safety Report 20808060 (Version 1)
Quarter: 2022Q2

REPORT INFORMATION
  Report Type: Spontaneous
  Country: US (occurrence: None)
  Receive Date: 20220509
  Receipt Date: 20220509
  Transmission Date: 20220721
  Serious: Yes (Hospitalization)
  Sender: FDA-Public Use
  Company Number: None

PATIENT
  Age: 71 Year
  Sex: Female
  Weight: 79.4 kg

DRUGS (1)
  1. PAXLOVID [Suspect]
     Active Substance: NIRMATRELVIR\RITONAVIR
     Indication: COVID-19
     Dates: start: 20220506, end: 20220509

REACTIONS (5)
  - Muscle spasms [None]
  - Hyperhidrosis [None]
  - Peripheral coldness [None]
  - Drug withdrawal syndrome [None]
  - Blood potassium decreased [None]

NARRATIVE: CASE EVENT DATE: 20220509
